FAERS Safety Report 20152154 (Version 1)
Quarter: 2021Q4

REPORT INFORMATION
  Report Type: Spontaneous
  Country: DE (occurrence: DE)
  Receive Date: 20211206
  Receipt Date: 20211206
  Transmission Date: 20220303
  Serious: Yes (Other)
  Sender: FDA-Public Use
  Company Number: None

PATIENT

DRUGS (1)
  1. CYTOTEC [Suspect]
     Active Substance: MISOPROSTOL
     Indication: Labour induction
     Dosage: CAPSULE WITH 25 MG, 50 MG, 50 MG, 50 MG 4 DOSES
     Route: 064
     Dates: start: 20190807, end: 20190807

REACTIONS (3)
  - Foetal exposure during delivery [Unknown]
  - Foetal heart rate deceleration abnormality [Unknown]
  - Dyspnoea [Unknown]
